FAERS Safety Report 11109453 (Version 1)
Quarter: 2015Q2

REPORT INFORMATION
  Report Type: Report from Study
  Country: FR (occurrence: FR)
  Receive Date: 20150513
  Receipt Date: 20150513
  Transmission Date: 20150821
  Serious: Yes (Hospitalization)
  Sender: FDA-Public Use
  Company Number: FR-GLAXOSMITHKLINE-FR2015GSK063675

PATIENT
  Age: 76 Year
  Sex: Male

DRUGS (6)
  1. TAHOR [Concomitant]
     Active Substance: ATORVASTATIN CALCIUM
  2. OMEGA-3-ACID ETHYL ESTERS. [Suspect]
     Active Substance: OMEGA-3-ACID ETHYL ESTERS
     Indication: ISCHAEMIC HEART DISEASE PROPHYLAXIS
     Dosage: UNK
     Dates: start: 20070914, end: 20130916
  3. PLAVIX [Concomitant]
     Active Substance: CLOPIDOGREL BISULFATE
  4. TENORMIN [Concomitant]
     Active Substance: ATENOLOL
  5. TRIATEC [Concomitant]
     Active Substance: RAMIPRIL
  6. KARDEGIC [Concomitant]
     Active Substance: ASPIRIN LYSINE

REACTIONS (1)
  - Ulcer [Unknown]

NARRATIVE: CASE EVENT DATE: 20091114
